FAERS Safety Report 23984888 (Version 1)
Quarter: 2024Q2

REPORT INFORMATION
  Report Type: Spontaneous
  Country: FR (occurrence: FR)
  Receive Date: 20240618
  Receipt Date: 20240618
  Transmission Date: 20240716
  Serious: Yes (Other)
  Sender: FDA-Public Use
  Company Number: FR-AFSSAPS-MP2024000926

PATIENT
  Age: 58 Year
  Sex: Female
  Weight: 54 kg

DRUGS (1)
  1. DICLOFENAC SODIUM [Suspect]
     Active Substance: DICLOFENAC\DICLOFENAC SODIUM
     Indication: Tendon disorder
     Dosage: UNK (MATIN ET SOIR)
     Route: 003
     Dates: start: 20240529, end: 20240530

REACTIONS (2)
  - Dermatitis bullous [Not Recovered/Not Resolved]
  - Pruritus [Not Recovered/Not Resolved]

NARRATIVE: CASE EVENT DATE: 20240530
